FAERS Safety Report 13288091 (Version 1)
Quarter: 2017Q1

REPORT INFORMATION
  Report Type: Not Available
  Country: US (occurrence: US)
  Receive Date: 20170302
  Receipt Date: 20170302
  Transmission Date: 20170428
  Serious: No
  Sender: FDA-Public Use
  Company Number: US-ANIPHARMA-2017-US-000570

PATIENT
  Age: 62 Year
  Sex: Female

DRUGS (2)
  1. REGLAN [Suspect]
     Active Substance: METOCLOPRAMIDE HYDROCHLORIDE
     Route: 048
  2. PROMETHAZINE HCL (NON-SPECIFIC) [Suspect]
     Active Substance: PROMETHAZINE HYDROCHLORIDE
     Route: 065

REACTIONS (1)
  - Hypersensitivity [Unknown]
